FAERS Safety Report 5107594-1 (Version None)
Quarter: 2006Q3

REPORT INFORMATION
  Report Type: 
  Country: None (occurrence: None)
  Receive Date: 20060913
  Receipt Date: 20060913
  Transmission Date: 20061208
  Serious: Yes (Other)
  Sender: FDA-Public Use
  Company Number: None

PATIENT
  Age: 13 Year
  Sex: Female
  Weight: 36.2 kg

DRUGS (1)
  1. IFOSFAMIDE [Suspect]
     Indication: OSTEOSARCOMA METASTATIC
     Dosage: 4550 MG -3500 MG/M2-DAILY X5 IV DRIP
     Route: 041

REACTIONS (5)
  - DEPRESSED LEVEL OF CONSCIOUSNESS [None]
  - ELECTROENCEPHALOGRAM ABNORMAL [None]
  - INCOHERENT [None]
  - INFUSION RELATED REACTION [None]
  - TONIC CLONIC MOVEMENTS [None]
